FAERS Safety Report 9551731 (Version 1)
Quarter: 2013Q3

REPORT INFORMATION
  Report Type: Spontaneous
  Country: US (occurrence: None)
  Receive Date: 20130724
  Receipt Date: 20130724
  Transmission Date: 20140515
  Serious: Yes (Hospitalization)
  Sender: FDA-Public Use
  Company Number: PHEH2013US004328

PATIENT
  Age: 68 Year
  Sex: Female
  Weight: 78.4 kg

DRUGS (18)
  1. GLEEVEC (IMATINIB) UNKNOWN [Suspect]
     Indication: CHRONIC MYELOID LEUKAEMIA
     Route: 048
     Dates: start: 20121012
  2. PRAVACHOL (PRAVASTATIN SODIUM) TABLET, 20MG [Concomitant]
  3. LASIX (FUROSEMIDE) TABLET, 40 MG [Concomitant]
  4. LOPRESSOR (METOPROLOL TARTRATE) [Concomitant]
  5. NEURONTIN (GABAPENTIN) [Concomitant]
  6. ZAROXOLYN (METOLAZONE) [Concomitant]
  7. ZYLOPRIM (ALLOPURINOL) [Concomitant]
  8. LAMISIL AT (TERBINAFINE HYDROCHLORIDE) [Concomitant]
  9. VALIUM (DIAZEPAM) [Concomitant]
  10. PROZAC (FLUOXETINE HYDROCHLORIDE) [Concomitant]
  11. SENOKOT-S (DOCUSATE SODIUM, SENNA ALEXANDRINA) [Concomitant]
  12. VITAMIN B COMPLEX (VITAMIN B COMPLEX) [Concomitant]
  13. ASPIRIN (ACETYLSALICYLIC ACID) [Concomitant]
  14. DESYREL (TRAZODONE HYDROCHLORIDE) [Concomitant]
  15. GLUCOPHAGE (METFORMIN HYDROCHLORIDE) [Concomitant]
  16. WELLBUTRIN (BUPROPION HYDROCHLORIDE) [Concomitant]
  17. NOVOLOG (INSULIN ASPART) [Concomitant]
  18. ROXICODONE (OXYCODONE HYDROCHLORIDE) (TABLETS) [Concomitant]

REACTIONS (1)
  - Pulmonary hypertension [None]
